FAERS Safety Report 23472640 (Version 1)
Quarter: 2024Q1

REPORT INFORMATION
  Report Type: Spontaneous
  Country: US (occurrence: US)
  Receive Date: 20240202
  Receipt Date: 20240202
  Transmission Date: 20240409
  Serious: Yes (Hospitalization, Other)
  Sender: FDA-Public Use
  Company Number: US-GILEAD-2024-0660671

PATIENT
  Age: 59 Year
  Sex: Male

DRUGS (1)
  1. YESCARTA [Suspect]
     Active Substance: AXICABTAGENE CILOLEUCEL
     Indication: Lymphoma
     Dosage: 2X10E6
     Route: 065
     Dates: start: 20240110, end: 20240110

REACTIONS (7)
  - Bacteraemia [Unknown]
  - Sepsis [Unknown]
  - Neurotoxicity [Not Recovered/Not Resolved]
  - Immune effector cell-associated neurotoxicity syndrome [Not Recovered/Not Resolved]
  - Haemophagocytic lymphohistiocytosis [Unknown]
  - Cytokine release syndrome [Recovered/Resolved]
  - Subarachnoid haemorrhage [Unknown]

NARRATIVE: CASE EVENT DATE: 20240112
